FAERS Safety Report 20231853 (Version 1)
Quarter: 2021Q4

REPORT INFORMATION
  Report Type: Report from Study
  Country: US (occurrence: US)
  Receive Date: 20211227
  Receipt Date: 20211227
  Transmission Date: 20220303
  Serious: Yes (Death, Other)
  Sender: FDA-Public Use
  Company Number: US-TAKEDA-2021TUS073197

PATIENT
  Sex: Female
  Weight: 56.689 kg

DRUGS (16)
  1. GLASSIA [Suspect]
     Active Substance: .ALPHA.1-PROTEINASE INHIBITOR HUMAN
     Indication: Alpha-1 antitrypsin deficiency
     Dosage: 3600 MILLIGRAM, 1/WEEK
     Route: 042
     Dates: start: 20131122
  2. GLASSIA [Suspect]
     Active Substance: .ALPHA.1-PROTEINASE INHIBITOR HUMAN
     Indication: Alpha-1 antitrypsin deficiency
     Dosage: 3600 MILLIGRAM, 1/WEEK
     Route: 042
     Dates: start: 20131122
  3. PREDNISONE [Concomitant]
     Active Substance: PREDNISONE
  4. OXYGEN [Concomitant]
     Active Substance: OXYGEN
  5. DIPHENHYDRAMINE [Concomitant]
     Active Substance: DIPHENHYDRAMINE
  6. SODIUM CHLORIDE [Concomitant]
     Active Substance: SODIUM CHLORIDE
  7. EPINEPHRINE [Concomitant]
     Active Substance: EPINEPHRINE
  8. SYMBICORT [Concomitant]
     Active Substance: BUDESONIDE\FORMOTEROL FUMARATE DIHYDRATE
  9. TUDORZA PRESSAIR [Concomitant]
     Active Substance: ACLIDINIUM BROMIDE
  10. DESLORATADINE\PSEUDOEPHEDRINE SULFATE [Concomitant]
     Active Substance: DESLORATADINE\PSEUDOEPHEDRINE SULFATE
  11. PREMPRO [Concomitant]
     Active Substance: ESTROGENS, CONJUGATED\MEDROXYPROGESTERONE ACETATE
  12. MINERALS\VITAMINS [Concomitant]
     Active Substance: MINERALS\VITAMINS
  13. Areds 2 visual advantage [Concomitant]
  14. AMBIEN [Concomitant]
     Active Substance: ZOLPIDEM TARTRATE
  15. DALIRESP [Concomitant]
     Active Substance: ROFLUMILAST
  16. ALBUTEROL [Concomitant]
     Active Substance: ALBUTEROL

REACTIONS (2)
  - Death [Fatal]
  - Hospice care [None]
